FAERS Safety Report 5365956-1 (Version None)
Quarter: 2007Q2

REPORT INFORMATION
  Report Type: 
  Country: None (occurrence: None)
  Receive Date: 20070611
  Receipt Date: 20070315
  Transmission Date: 20071010
  Serious: Yes (Other)
  Sender: FDA-Public Use
  Company Number: USA-2007-0026782

PATIENT
  Age: 23 Year
  Sex: Male

DRUGS (1)
  1. OXYCONTIN [Suspect]
     Indication: DRUG ABUSER
     Dosage: INT
     Route: 042

REACTIONS (6)
  - AGGRESSION [None]
  - APATHY [None]
  - DRUG ABUSER [None]
  - DRUG DEPENDENCE [None]
  - IRRITABILITY [None]
  - MOOD SWINGS [None]
